FAERS Safety Report 25892188 (Version 1)
Quarter: 2025Q4

REPORT INFORMATION
  Report Type: Spontaneous
  Country: US (occurrence: US)
  Receive Date: 20251007
  Receipt Date: 20251007
  Transmission Date: 20260118
  Serious: Yes (Other)
  Sender: OPTINOSE INC
  Company Number: US-OPTINOSE US, INC.-2025OPT000015

PATIENT

DRUGS (2)
  1. XHANCE [Suspect]
     Active Substance: FLUTICASONE PROPIONATE
     Indication: Chronic rhinosinusitis with nasal polyps
     Dosage: 186 MICROGRAM, BID
     Route: 045
  2. DEVICE [Suspect]
     Active Substance: DEVICE
     Indication: Chronic rhinosinusitis with nasal polyps
     Dosage: UNK UNK

REACTIONS (4)
  - Endocrine ophthalmopathy [Unknown]
  - Condition aggravated [Unknown]
  - Heart rate increased [Unknown]
  - Nasal congestion [Unknown]
